FAERS Safety Report 5939544-X (Version None)
Quarter: 2008Q4

REPORT INFORMATION
  Report Type: 
  Country: None (occurrence: None)
  Receive Date: 20081029
  Receipt Date: 20080715
  Transmission Date: 20090506
  Serious: Yes (Hospitalization)
  Sender: FDA-Public Use
  Company Number: ENT 2008-0072

PATIENT
  Age: 49 Year
  Sex: Male

DRUGS (5)
  1. COMTAN [Suspect]
     Indication: PARKINSON'S DISEASE
     Dosage: 400 MG (100 MG,4 IN 1 D)
     Route: 048
     Dates: start: 20080519, end: 20080526
  2. MEVALOTIN [Concomitant]
  3. CARBIDOPA + LEVODOPA [Concomitant]
  4. PRAMIPEXOLE DIHYDROCHLORIDE [Concomitant]
  5. ARTANE [Concomitant]

REACTIONS (3)
  - IMMOBILE [None]
  - NEUROLEPTIC MALIGNANT SYNDROME [None]
  - URINARY INCONTINENCE [None]
